FAERS Safety Report 9355759 (Version 1)
Quarter: 2013Q2

REPORT INFORMATION
  Report Type: Spontaneous
  Country: US (occurrence: US)
  Receive Date: 20130619
  Receipt Date: 20130619
  Transmission Date: 20140414
  Serious: No
  Sender: FDA-Public Use
  Company Number: US-TEVA-413042USA

PATIENT
  Age: 58 Year
  Sex: Female
  Weight: 52.21 kg

DRUGS (2)
  1. NUVIGIL [Suspect]
     Indication: CIRCADIAN RHYTHM SLEEP DISORDER
     Route: 048
     Dates: start: 201304, end: 201306
  2. SINGULAIR [Concomitant]
     Indication: SEASONAL ALLERGY

REACTIONS (3)
  - Fear [Not Recovered/Not Resolved]
  - Headache [Recovered/Resolved]
  - Incorrect dose administered [Recovered/Resolved]
